FAERS Safety Report 20113590 (Version 1)
Quarter: 2021Q4

REPORT INFORMATION
  Report Type: Spontaneous
  Country: US (occurrence: US)
  Receive Date: 20211125
  Receipt Date: 20211125
  Transmission Date: 20220303
  Serious: Yes (Other)
  Sender: FDA-Public Use
  Company Number: US-GLAXOSMITHKLINE-US2021GSK241630

PATIENT
  Sex: Female

DRUGS (24)
  1. ZANTAC [Suspect]
     Active Substance: RANITIDINE HYDROCHLORIDE
     Indication: Urticaria
     Dosage: 150 MG, QD
     Route: 065
     Dates: start: 201606, end: 201912
  2. ZANTAC [Suspect]
     Active Substance: RANITIDINE HYDROCHLORIDE
     Indication: Rash
  3. ZANTAC [Suspect]
     Active Substance: RANITIDINE HYDROCHLORIDE
     Indication: Alopecia
  4. ZANTAC [Suspect]
     Active Substance: RANITIDINE HYDROCHLORIDE
     Indication: Nausea
  5. ZANTAC [Suspect]
     Active Substance: RANITIDINE HYDROCHLORIDE
     Indication: Urticaria
     Dosage: 150 MG, QD
     Route: 065
     Dates: start: 201606, end: 201912
  6. ZANTAC [Suspect]
     Active Substance: RANITIDINE HYDROCHLORIDE
     Indication: Rash
  7. ZANTAC [Suspect]
     Active Substance: RANITIDINE HYDROCHLORIDE
     Indication: Alopecia
  8. ZANTAC [Suspect]
     Active Substance: RANITIDINE HYDROCHLORIDE
     Indication: Nausea
  9. RANITIDINE [Suspect]
     Active Substance: RANITIDINE
     Indication: Urticaria
     Dosage: 150 MG, QD
     Route: 065
     Dates: start: 201606, end: 201912
  10. RANITIDINE [Suspect]
     Active Substance: RANITIDINE
     Indication: Rash
  11. RANITIDINE [Suspect]
     Active Substance: RANITIDINE
     Indication: Alopecia
  12. RANITIDINE [Suspect]
     Active Substance: RANITIDINE
     Indication: Nausea
  13. RANITIDINE [Suspect]
     Active Substance: RANITIDINE
     Indication: Urticaria
     Dosage: 150 MG, QD
     Route: 065
     Dates: start: 201606, end: 201912
  14. RANITIDINE [Suspect]
     Active Substance: RANITIDINE
     Indication: Rash
  15. RANITIDINE [Suspect]
     Active Substance: RANITIDINE
     Indication: Alopecia
  16. RANITIDINE [Suspect]
     Active Substance: RANITIDINE
     Indication: Nausea
  17. ZANTAC [Suspect]
     Active Substance: RANITIDINE HYDROCHLORIDE
     Indication: Urticaria
     Dosage: 150 MG, QD
     Route: 065
     Dates: start: 201606, end: 201912
  18. ZANTAC [Suspect]
     Active Substance: RANITIDINE HYDROCHLORIDE
     Indication: Rash
  19. ZANTAC [Suspect]
     Active Substance: RANITIDINE HYDROCHLORIDE
     Indication: Alopecia
  20. ZANTAC [Suspect]
     Active Substance: RANITIDINE HYDROCHLORIDE
     Indication: Nausea
  21. RANITIDINE [Suspect]
     Active Substance: RANITIDINE
     Indication: Urticaria
     Dosage: 150 MG, QD
     Route: 065
     Dates: start: 201606, end: 201912
  22. RANITIDINE [Suspect]
     Active Substance: RANITIDINE
     Indication: Rash
  23. RANITIDINE [Suspect]
     Active Substance: RANITIDINE
     Indication: Alopecia
  24. RANITIDINE [Suspect]
     Active Substance: RANITIDINE
     Indication: Nausea

REACTIONS (1)
  - Breast cancer [Unknown]
